FAERS Safety Report 18090656 (Version 1)
Quarter: 2020Q3

REPORT INFORMATION
  Report Type: Spontaneous
  Country: US (occurrence: US)
  Receive Date: 20200730
  Receipt Date: 20200730
  Transmission Date: 20201103
  Serious: No
  Sender: FDA-Public Use
  Company Number: US-AUROBINDO-AUR-APL-2019-064381

PATIENT
  Sex: Female

DRUGS (1)
  1. ALPRAZOLAM EXTENDED?RELEASE TABLETS 1MG [Suspect]
     Active Substance: ALPRAZOLAM
     Indication: PANIC DISORDER
     Dosage: UNK
     Route: 065

REACTIONS (10)
  - Drug tolerance [Unknown]
  - Grief reaction [Unknown]
  - Drug ineffective [Unknown]
  - Withdrawal syndrome [Unknown]
  - Tinnitus [Unknown]
  - Product substitution issue [Unknown]
  - Insomnia [Unknown]
  - Laziness [Unknown]
  - Agoraphobia [Unknown]
  - Psychiatric symptom [Unknown]
